FAERS Safety Report 21783370 (Version 1)
Quarter: 2022Q4

REPORT INFORMATION
  Report Type: Spontaneous
  Country: MY (occurrence: MY)
  Receive Date: 20221227
  Receipt Date: 20221227
  Transmission Date: 20230113
  Serious: No
  Sender: FDA-Public Use
  Company Number: MY-PFIZER INC-202201371278

PATIENT
  Age: 39 Year
  Sex: Male

DRUGS (1)
  1. PAXLOVID [Suspect]
     Active Substance: NIRMATRELVIR\RITONAVIR
     Indication: COVID-19
     Dosage: 1 DF, 2X/DAY
     Route: 048

REACTIONS (4)
  - Myalgia [Recovering/Resolving]
  - Ageusia [Recovering/Resolving]
  - Constipation [Recovering/Resolving]
  - Incorrect dose administered [Unknown]
